FAERS Safety Report 7715010-6 (Version None)
Quarter: 2011Q3

REPORT INFORMATION
  Report Type: 
  Country: None (occurrence: None)
  Receive Date: 20110829
  Receipt Date: 20110323
  Transmission Date: 20111222
  Serious: No
  Sender: FDA-Public Use
  Company Number: US-ASTRAZENECA-2011SE16585

PATIENT
  Age: 77 Year
  Sex: Female
  Weight: 88.9 kg

DRUGS (6)
  1. CLONIDINE [Concomitant]
  2. VIMOVO [Suspect]
     Indication: ARTHRITIS
     Dosage: 500 MG/20 MG DAILY
     Route: 048
  3. PRINZIDE [Concomitant]
  4. VITAMIN D [Concomitant]
  5. METOPROLOL TARTRATE [Concomitant]
  6. ASPIRIN [Concomitant]

REACTIONS (2)
  - DIZZINESS [None]
  - VESSEL PUNCTURE SITE PAIN [None]
